FAERS Safety Report 16026551 (Version 1)
Quarter: 2019Q1

REPORT INFORMATION
  Report Type: Spontaneous
  Country: DE (occurrence: DE)
  Receive Date: 20190302
  Receipt Date: 20190302
  Transmission Date: 20190418
  Serious: Yes (Other)
  Sender: FDA-Public Use
  Company Number: DE-BAUSCH-BL-2019-005937

PATIENT
  Sex: Female

DRUGS (1)
  1. TIMO EDO 0.5% [Suspect]
     Active Substance: TIMOLOL MALEATE
     Indication: GLAUCOMA
     Dosage: STARED USING FOR SEVERAL YEARS PRIOR TO INITIAL REPORT
     Route: 065

REACTIONS (2)
  - Facial nerve disorder [Unknown]
  - Eyelid function disorder [Not Recovered/Not Resolved]

NARRATIVE: CASE EVENT DATE: 2018
